FAERS Safety Report 22941182 (Version 2)
Quarter: 2023Q4

REPORT INFORMATION
  Report Type: Report from Study
  Country: CA (occurrence: CA)
  Receive Date: 20230913
  Receipt Date: 20231010
  Transmission Date: 20240110
  Serious: Yes (Other)
  Sender: FDA-Public Use
  Company Number: CA-HLS-202302119

PATIENT
  Age: 26 Year
  Sex: Female

DRUGS (11)
  1. CLOZARIL [Suspect]
     Active Substance: CLOZAPINE
     Indication: Aggression
     Dosage: 2 TABLETS (50MG) AT 0800AND 2000 HOURS
     Route: 048
     Dates: start: 20230117
  2. CLOZARIL [Suspect]
     Active Substance: CLOZAPINE
     Indication: Intentional self-injury
     Dosage: 2 TABLETS (50MG) AT 0800AND 2000 HOURS
     Route: 048
     Dates: start: 20230117
  3. CLOZARIL [Suspect]
     Active Substance: CLOZAPINE
     Indication: Aggression
     Dosage: 50 MG AM+150MG PM
     Route: 048
     Dates: start: 202301
  4. CLOZARIL [Suspect]
     Active Substance: CLOZAPINE
     Indication: Intentional self-injury
     Dosage: 50 MG AM+150MG PM
     Route: 048
     Dates: start: 202301
  5. CLOZARIL [Suspect]
     Active Substance: CLOZAPINE
     Indication: Aggression
     Dosage: 1 TABELT AT 2000 HOURS.
     Route: 048
     Dates: start: 20230712
  6. CLOZARIL [Suspect]
     Active Substance: CLOZAPINE
     Indication: Intentional self-injury
     Dosage: 1 TABELT AT 2000 HOURS.
     Route: 048
     Dates: start: 20230712
  7. DIVALPROEX SODIUM [Concomitant]
     Active Substance: DIVALPROEX SODIUM
     Indication: Aggression
     Dosage: 750 MG TWICE DAILY
     Route: 048
  8. DIVALPROEX SODIUM [Concomitant]
     Active Substance: DIVALPROEX SODIUM
     Indication: Mood swings
     Dosage: 750 MG TWICE DAILY
     Route: 048
  9. OLANZAPINE [Concomitant]
     Active Substance: OLANZAPINE
     Indication: Agitation
     Dosage: 10 MG TWICE DAILY
     Route: 048
  10. LORAZEPAM [Concomitant]
     Active Substance: LORAZEPAM
     Indication: Agitation
     Dosage: 2 MG THREE TIMES DAILY
     Route: 048
  11. MELATONIN [Concomitant]
     Active Substance: MELATONIN
     Indication: Insomnia
     Dosage: 1 MG
     Route: 048

REACTIONS (5)
  - Anxiety [Unknown]
  - Attention deficit hyperactivity disorder [Unknown]
  - Foetal growth abnormality [Unknown]
  - Off label use [Unknown]
  - Post-traumatic stress disorder [Unknown]
